FAERS Safety Report 5602366-3 (Version None)
Quarter: 2008Q1

REPORT INFORMATION
  Report Type: 
  Country: None (occurrence: None)
  Receive Date: 20080118
  Receipt Date: 20080104
  Transmission Date: 20080703
  Serious: Yes (Death)
  Sender: FDA-Public Use
  Company Number: 2008001145

PATIENT
  Age: 16 Month
  Sex: Male

DRUGS (5)
  1. DIPHENHYDRAMINE HCL [Suspect]
     Dosage: UNSPECIFIED, ORAL
     Route: 048
  2. OXYCODONE HCL [Suspect]
     Dosage: UNSPECIFIED, ORAL
     Route: 048
  3. TRAMADOL HCL [Suspect]
     Dosage: UNSPECIFIED, ORAL
     Route: 048
  4. NAPROXEN [Suspect]
     Dosage: UNSPECIFIED, ORAL
     Route: 048
  5. H2-RECEPTOR ANTAGONISTS (DRUGS FOR TREATMENT OF PEPTIC ULCER) [Suspect]
     Dosage: UNSPECIFIED, ORAL
     Route: 048

REACTIONS (3)
  - CARDIAC ARREST [None]
  - DRUG TOXICITY [None]
  - RESPIRATORY ARREST [None]
